FAERS Safety Report 6882672-5 (Version None)
Quarter: 2010Q3

REPORT INFORMATION
  Report Type: 
  Country: None (occurrence: None)
  Receive Date: 20100729
  Receipt Date: 20100719
  Transmission Date: 20110219
  Serious: Yes (Hospitalization)
  Sender: FDA-Public Use
  Company Number: US-ROCHE-714301

PATIENT
  Sex: Male

DRUGS (8)
  1. MYCOPHENOLATE MOFETIL [Suspect]
     Route: 048
     Dates: start: 20090124
  2. TACROLIMUS [Suspect]
     Route: 048
     Dates: start: 20090126, end: 20090213
  3. TACROLIMUS [Suspect]
     Route: 048
     Dates: start: 20090216
  4. METHYLPREDNISOLONE [Suspect]
     Route: 042
     Dates: start: 20090124
  5. PREDNISONE [Suspect]
     Route: 048
     Dates: start: 20090130
  6. PREDNISONE [Suspect]
     Route: 048
     Dates: start: 20090220, end: 20090226
  7. PREDNISONE [Suspect]
     Route: 048
     Dates: start: 20090227, end: 20090305
  8. PREDNISONE [Suspect]
     Route: 048
     Dates: start: 20090306

REACTIONS (3)
  - CHOLANGITIS [None]
  - MENTAL STATUS CHANGES [None]
  - PULMONARY OEDEMA [None]
